FAERS Safety Report 14740497 (Version 1)
Quarter: 2018Q2

REPORT INFORMATION
  Report Type: Spontaneous
  Country: SE (occurrence: SE)
  Receive Date: 20180410
  Receipt Date: 20180410
  Transmission Date: 20180711
  Serious: Yes (Life-Threatening, Hospitalization, Other)
  Sender: FDA-Public Use
  Company Number: SE-MACLEODS PHARMACEUTICALS US LTD-MAC2018012416

PATIENT

DRUGS (4)
  1. ATENOLOL TABLET [Suspect]
     Active Substance: ATENOLOL
     Indication: SUICIDE ATTEMPT
     Dosage: UNK, LARGE QUANTITIES, OVERDOSE
     Route: 048
  2. VENLAFAXINE [Suspect]
     Active Substance: VENLAFAXINE HYDROCHLORIDE
     Indication: SUICIDE ATTEMPT
     Dosage: UNK, LARGE QUANTITIES, TABLET , OVERDOSE
     Route: 048
  3. AMLODIPINE BESYLATE TABLET [Suspect]
     Active Substance: AMLODIPINE BESYLATE
     Indication: SUICIDE ATTEMPT
     Dosage: UNK, LARGE QUANTITIES, OVERDOSE
     Route: 048
  4. PARACETAMOL [Suspect]
     Active Substance: ACETAMINOPHEN
     Indication: SUICIDE ATTEMPT
     Dosage: UNK, LARGE QUANTITIES, OVERDOSE
     Route: 048

REACTIONS (5)
  - Shock [Recovered/Resolved]
  - Myocardial depression [Recovered/Resolved]
  - Intentional overdose [Recovered/Resolved]
  - Toxicity to various agents [Recovered/Resolved]
  - Loss of consciousness [Recovered/Resolved]
